FAERS Safety Report 8064002-9 (Version None)
Quarter: 2012Q1

REPORT INFORMATION
  Report Type: 
  Country: None (occurrence: None)
  Receive Date: 20120123
  Receipt Date: 20120111
  Transmission Date: 20120608
  Serious: Yes (Hospitalization)
  Sender: FDA-Public Use
  Company Number: US-PFIZER INC-2011040781

PATIENT
  Sex: Male

DRUGS (7)
  1. COLACE [Concomitant]
     Indication: CONSTIPATION
     Dosage: UNK
     Dates: start: 20110110
  2. TEMSIROLIMUS [Suspect]
     Indication: NON-SMALL CELL LUNG CANCER
     Dosage: 50 MG, WEEKLY
     Route: 042
     Dates: start: 20110110, end: 20110214
  3. NERATINIB [Suspect]
     Indication: NON-SMALL CELL LUNG CANCER
     Dosage: 120 MG, 1X/DAY
     Route: 048
     Dates: start: 20110110, end: 20110214
  4. COMPAZINE [Concomitant]
     Indication: VOMITING
  5. COMPAZINE [Concomitant]
     Indication: NAUSEA
     Dosage: UNK
     Dates: start: 20110103
  6. OXYCODONE [Concomitant]
     Indication: PAIN MANAGEMENT
     Dosage: UNK
     Dates: start: 20110103
  7. OXYCONTIN [Concomitant]
     Indication: PAIN MANAGEMENT
     Dosage: UNK
     Dates: start: 20110110

REACTIONS (2)
  - CEREBRAL ISCHAEMIA [None]
  - PLATELET COUNT DECREASED [None]
